FAERS Safety Report 8584770 (Version 5)
Quarter: 2012Q4

REPORT INFORMATION
  Report Type: 
  Country: US (occurrence: US)
  Receive Date: 20120529
  Receipt Date: 20121025
  Transmission Date: 20130627
  Serious: Yes (Other)
  Sender: FDA-Public Use
  Company Number: CHPA2012US011034

PATIENT
  Age: 48 Year
  Sex: Female
  Weight: 96.6 kg

DRUGS (9)
  1. GAS-X EXTRA STRENGTH SOFTGELS [Suspect]
     Indication: FLATULENCE
     Dosage: Unk, Unk
     Route: 048
  2. BYSTOLIC [Concomitant]
     Dosage: 10 mg, QD
  3. MELOXICAM [Concomitant]
     Dosage: 7.5 mg, QD
  4. RESTORIL [Concomitant]
     Dosage: 15 mg, QD
  5. CELEXA [Concomitant]
     Dosage: 20 mg, QD
  6. ASPIRIN ^BAYER^ [Concomitant]
     Dosage: 81 mg, QD
  7. GARLIC [Concomitant]
     Dosage: AS DIRECTED
  8. TRAZODONE [Concomitant]
     Dosage: 50 mg, TID
  9. DIOVAN HCT [Concomitant]
     Dosage: 1 DF, QD

REACTIONS (41)
  - Lichen planus [Recovered/Resolved]
  - Rash [Recovered/Resolved]
  - Skin discolouration [Recovered/Resolved]
  - Scar [Not Recovered/Not Resolved]
  - Pruritus [Recovered/Resolved]
  - Sleep apnoea syndrome [Unknown]
  - Thrombosis [Unknown]
  - Syncope [Unknown]
  - Depression [Unknown]
  - Movement disorder [Unknown]
  - Visual impairment [Unknown]
  - Tinel^s sign [Unknown]
  - Carpal tunnel syndrome [Unknown]
  - C-reactive protein increased [Unknown]
  - Phalen^s test positive [Unknown]
  - Osteoarthritis [Unknown]
  - Gastric disorder [Unknown]
  - Neuropathy peripheral [Unknown]
  - Cervical dysplasia [Unknown]
  - Heart rate decreased [Unknown]
  - Pain in extremity [Unknown]
  - Arthralgia [Unknown]
  - Hypersensitivity [Recovered/Resolved]
  - Anxiety [Unknown]
  - Fatigue [Unknown]
  - Irritability [Unknown]
  - Insomnia [Unknown]
  - Headache [Unknown]
  - Dizziness [Unknown]
  - Asthenia [Unknown]
  - Disturbance in attention [Unknown]
  - Back pain [Unknown]
  - Muscular weakness [Unknown]
  - Paraesthesia [Unknown]
  - Hypoaesthesia [Unknown]
  - Grip strength decreased [Unknown]
  - Oedema peripheral [Unknown]
  - Protein urine present [Unknown]
  - Blood cholesterol increased [Unknown]
  - Blood triglycerides increased [Unknown]
  - Low density lipoprotein increased [Unknown]
